FAERS Safety Report 7428834 (Version 2)
Quarter: 2013Q1

REPORT INFORMATION
  Report Type: Spontaneous
  Country: ES (occurrence: ES)
  Receive Date: 20100623
  Receipt Date: 20130214
  Transmission Date: 20140127
  Serious: Yes (Hospitalization)
  Sender: FDA-Public Use
  Company Number: ES-JNJFOC-20100605900

PATIENT
  Age: 56 Year
  Sex: Male
  Weight: 70 kg

DRUGS (3)
  1. STELARA [Suspect]
     Indication: PSORIASIS
     Route: 058
  2. STELARA [Suspect]
     Indication: PSORIASIS
     Dosage: APPROXIMATE TOTAL NUMBER OF INJECTIONS RECEIVED WAS 4
     Route: 058
     Dates: start: 20100301, end: 20110425
  3. ADALAT OROS [Concomitant]
     Indication: HYPERTENSION
     Route: 048
     Dates: start: 1999, end: 201105

REACTIONS (1)
  - Angina pectoris [Recovered/Resolved]
